FAERS Safety Report 11439979 (Version 1)
Quarter: 2015Q3

REPORT INFORMATION
  Report Type: Spontaneous
  Country: US (occurrence: US)
  Receive Date: 20150901
  Receipt Date: 20150901
  Transmission Date: 20151125
  Serious: No
  Sender: FDA-Public Use
  Company Number: US-ROCHE-1137639

PATIENT
  Sex: Male
  Weight: 87.17 kg

DRUGS (4)
  1. PEGASYS [Suspect]
     Active Substance: PEGINTERFERON ALFA-2A
     Indication: CHRONIC HEPATITIS C
     Route: 058
     Dates: start: 20111022
  2. RIBASPHERE [Suspect]
     Active Substance: RIBAVIRIN
     Route: 048
  3. RIBASPHERE [Suspect]
     Active Substance: RIBAVIRIN
     Indication: CHRONIC HEPATITIS C
     Dosage: DIVIDED DOSES
     Route: 048
     Dates: start: 20111022
  4. VICTRELIS [Suspect]
     Active Substance: BOCEPREVIR
     Indication: CHRONIC HEPATITIS C
     Route: 048
     Dates: start: 20111129

REACTIONS (4)
  - Anaemia [Unknown]
  - White blood cell count decreased [Unknown]
  - Weight decreased [Unknown]
  - Platelet count decreased [Unknown]
